FAERS Safety Report 11842132 (Version 1)
Quarter: 2015Q4

REPORT INFORMATION
  Report Type: Spontaneous
  Country: US (occurrence: US)
  Receive Date: 20151216
  Receipt Date: 20151216
  Transmission Date: 20160305
  Serious: No
  Sender: FDA-Public Use
  Company Number: US-RB-073530-15

PATIENT
  Sex: Male

DRUGS (1)
  1. DELSYM [Suspect]
     Active Substance: DEXTROMETHORPHAN
     Indication: PRODUCT USED FOR UNKNOWN INDICATION
     Dosage: 5ML. TOOK 20 ML TOTAL FROM 15-JAN-2015 TO 16-JAN-2015,FREQUENCY UNK
     Route: 065
     Dates: start: 20150115

REACTIONS (2)
  - Dizziness [Recovered/Resolved]
  - Nervousness [Recovered/Resolved]
